FAERS Safety Report 6114701-0 (Version None)
Quarter: 2009Q1

REPORT INFORMATION
  Report Type: 
  Country: None (occurrence: None)
  Receive Date: 20090313
  Receipt Date: 20090227
  Transmission Date: 20090719
  Serious: Yes (Hospitalization)
  Sender: FDA-Public Use
  Company Number: PHHY2009GB07577

PATIENT

DRUGS (1)
  1. SANDIMMUNE [Suspect]
     Route: 048

REACTIONS (2)
  - GASTROINTESTINAL TUBE INSERTION [None]
  - INTENSIVE CARE [None]
